FAERS Safety Report 17764984 (Version 2)
Quarter: 2020Q2

REPORT INFORMATION
  Report Type: Spontaneous
  Country: US (occurrence: US)
  Receive Date: 20200511
  Receipt Date: 20200521
  Transmission Date: 20200714
  Serious: Yes (Hospitalization, Other)
  Sender: FDA-Public Use
  Company Number: US-LUPIN PHARMACEUTICALS INC.-2020-02057

PATIENT
  Age: 77 Year
  Sex: Female

DRUGS (3)
  1. LEVETIRACETAM. [Suspect]
     Active Substance: LEVETIRACETAM
     Indication: EPILEPSY
     Dosage: 500 MILLIGRAM, BID
     Route: 065
  2. SERTRALINE [Concomitant]
     Active Substance: SERTRALINE HYDROCHLORIDE
     Indication: DEPRESSION
     Dosage: UNK
     Route: 065
  3. LEVETIRACETAM. [Suspect]
     Active Substance: LEVETIRACETAM
     Dosage: UNK
     Route: 065

REACTIONS (14)
  - Loss of personal independence in daily activities [Recovering/Resolving]
  - Negative thoughts [Recovering/Resolving]
  - Anxiety [Recovering/Resolving]
  - Apathy [Recovering/Resolving]
  - Feeding disorder [Recovering/Resolving]
  - Phobia [Recovering/Resolving]
  - Poverty of thought content [Recovering/Resolving]
  - Major depression [Recovering/Resolving]
  - Euphoric mood [Recovering/Resolving]
  - Depression [Recovering/Resolving]
  - Treatment noncompliance [Unknown]
  - Abulia [Recovering/Resolving]
  - Weight decreased [Recovering/Resolving]
  - Poor personal hygiene [Recovering/Resolving]
